FAERS Safety Report 8216499-9 (Version None)
Quarter: 2012Q1

REPORT INFORMATION
  Report Type: 
  Country: None (occurrence: None)
  Receive Date: 20120316
  Receipt Date: 20101020
  Transmission Date: 20120608
  Serious: Yes (Disabling)
  Sender: FDA-Public Use
  Company Number: AU-JNJFOC-20101205558

PATIENT
  Sex: Female
  Weight: 74 kg

DRUGS (18)
  1. FOLIC ACID [Concomitant]
     Route: 048
  2. IBRUPROFEN [Concomitant]
     Route: 048
     Dates: start: 20090516
  3. OSTEVIT-D [Concomitant]
     Route: 048
     Dates: start: 20080620
  4. MODURETIC 5-50 [Concomitant]
     Route: 048
     Dates: start: 20070825
  5. IBRUPROFEN [Concomitant]
     Route: 048
     Dates: start: 20080313
  6. METHOTREXATE [Concomitant]
     Route: 048
     Dates: start: 20080628
  7. BACTRIM [Concomitant]
     Route: 061
     Dates: start: 20100427
  8. NEXIUM [Concomitant]
     Route: 048
     Dates: start: 20081001
  9. DULOXETIME HYDROCHLORIDE [Concomitant]
     Route: 048
     Dates: start: 20100128
  10. ACETAMINOPHEN [Concomitant]
     Route: 048
  11. IBRUPROFEN [Concomitant]
     Route: 048
     Dates: start: 20080618
  12. METHOTREXATE [Suspect]
     Indication: RHEUMATOID ARTHRITIS
     Route: 048
     Dates: start: 20060923, end: 20061014
  13. METHOTREXATE [Suspect]
     Route: 048
     Dates: start: 20061021, end: 20071013
  14. GOLIMUMAB [Suspect]
     Indication: RHEUMATOID ARTHRITIS
     Route: 058
     Dates: start: 20070921
  15. GOLIMUMAB [Suspect]
     Route: 058
     Dates: start: 20100917
  16. GOLIMUMAB [Suspect]
     Route: 058
     Dates: start: 20061020
  17. PREDNISOLONE [Concomitant]
     Route: 048
     Dates: start: 20100901
  18. IBUPROFEN [Concomitant]
     Route: 048
     Dates: start: 20090401

REACTIONS (1)
  - SQUAMOUS CELL CARCINOMA [None]
